FAERS Safety Report 13009975 (Version 1)
Quarter: 2020Q3

REPORT INFORMATION
  Report Type: Report from Study
  Country: US (occurrence: US)
  Receive Date: 20161208
  Receipt Date: 20161208
  Transmission Date: 20201104
  Serious: Yes (Hospitalization)
  Sender: FDA-Public Use
  Company Number: US-009507513-1612USA001380

PATIENT

DRUGS (4)
  1. RIBAVIRIN. [Suspect]
     Active Substance: RIBAVIRIN
     Indication: CHRONIC HEPATITIS C
     Dosage: 1000 MG/DAY (BODYWEIGHT LESS THAN 75 KG) OR 1200 MG/DAY (BODYWEIGHT NO LESS THAN 75 KG)
     Route: 048
  2. RITONAVIR. [Suspect]
     Active Substance: RITONAVIR
     Indication: CHRONIC HEPATITIS C
     Dosage: 100 MG, TWICE DAILY
     Route: 048
  3. PEGASYS [Suspect]
     Active Substance: PEGINTERFERON ALFA-2A
     Indication: CHRONIC HEPATITIS C
     Dosage: 180 MICROGRAM, ONCE WEEKLY
     Route: 058
  4. DANOPREVIR. [Suspect]
     Active Substance: DANOPREVIR
     Indication: CHRONIC HEPATITIS C
     Dosage: 100 MG, TWICE DAILY
     Route: 048

REACTIONS (1)
  - Mood altered [Unknown]
